FAERS Safety Report 6130405-2 (Version None)
Quarter: 2009Q1

REPORT INFORMATION
  Report Type: 
  Country: None (occurrence: None)
  Receive Date: 20090324
  Receipt Date: 20090317
  Transmission Date: 20090719
  Serious: Yes (Other)
  Sender: FDA-Public Use
  Company Number: PHHY2009ES07476

PATIENT
  Age: 78 Year
  Sex: Female

DRUGS (2)
  1. ACLASTA [Suspect]
     Indication: OSTEOPOROSIS
     Dosage: UNK
     Dates: start: 20081101
  2. CORTICOSTEROIDS [Concomitant]
     Dosage: UNK

REACTIONS (3)
  - DEAFNESS [None]
  - MOUTH ULCERATION [None]
  - OSTEONECROSIS [None]
